FAERS Safety Report 20878962 (Version 1)
Quarter: 2022Q2

REPORT INFORMATION
  Report Type: Spontaneous
  Country: JP (occurrence: JP)
  Receive Date: 20220526
  Receipt Date: 20220526
  Transmission Date: 20220721
  Serious: Yes (Other)
  Sender: FDA-Public Use
  Company Number: JP-DSJP-DSJ-2021-116717

PATIENT
  Age: 8 Decade
  Sex: Male

DRUGS (2)
  1. ENHERTU [Suspect]
     Active Substance: FAM-TRASTUZUMAB DERUXTECAN-NXKI
     Indication: Gastric cancer
     Dosage: UNK
     Route: 042
     Dates: start: 20210512, end: 20210512
  2. ENHERTU [Suspect]
     Active Substance: FAM-TRASTUZUMAB DERUXTECAN-NXKI
     Dosage: UNK
     Route: 042
     Dates: start: 20210602

REACTIONS (9)
  - Ascites [Unknown]
  - Decreased appetite [Recovering/Resolving]
  - Malaise [Recovered/Resolved]
  - Decreased appetite [Unknown]
  - Malaise [Unknown]
  - Alopecia [Unknown]
  - Disease progression [Unknown]
  - Carcinoembryonic antigen increased [Unknown]
  - Weight increased [Unknown]

NARRATIVE: CASE EVENT DATE: 20210501
